FAERS Safety Report 9680714 (Version 2)
Quarter: 2013Q4

REPORT INFORMATION
  Report Type: Spontaneous
  Country: ES (occurrence: ES)
  Receive Date: 20131111
  Receipt Date: 20131129
  Transmission Date: 20140711
  Serious: Yes (Other)
  Sender: FDA-Public Use
  Company Number: ES-AMGEN-ESPSP2013078903

PATIENT
  Age: 87 Year
  Sex: Female
  Weight: 53 kg

DRUGS (4)
  1. PROLIA [Suspect]
     Indication: OSTEOPOROSIS
     Dosage: 60 MG, Q6MO
     Route: 058
     Dates: start: 20130910, end: 20131030
  2. DIOVAN [Concomitant]
     Indication: HYPERTENSION
     Dosage: UNK UNK, QD
     Route: 048
  3. IDEOS UNIDIA [Concomitant]
     Indication: OSTEOPOROSIS
     Dosage: UNK UNK, QD
     Route: 048
  4. HIDROFEROL [Concomitant]
     Indication: HYPERVITAMINOSIS D
     Dosage: 0.266 MG, QMO
     Route: 048

REACTIONS (2)
  - Generalised erythema [Unknown]
  - Oedema peripheral [Unknown]
